FAERS Safety Report 5646883-9 (Version None)
Quarter: 2008Q1

REPORT INFORMATION
  Report Type: 
  Country: None (occurrence: None)
  Receive Date: 20080229
  Receipt Date: 20080229
  Transmission Date: 20080703
  Serious: Yes (Life-Threatening, Other)
  Sender: FDA-Public Use
  Company Number: None

PATIENT
  Age: 42 Year
  Sex: Female
  Weight: 54.4316 kg

DRUGS (2)
  1. EFFEXOR XR [Suspect]
     Indication: POSTPARTUM DEPRESSION
     Dosage: 37.5 MG DAILY ORAL
     Route: 048
  2. AUGMENTIN [Suspect]
     Indication: SINUSITIS
     Dosage: 2 TABLETS TWICE DAILY ORAL
     Route: 048
     Dates: start: 20080129, end: 20080202

REACTIONS (2)
  - DRUG INTERACTION [None]
  - SEROTONIN SYNDROME [None]
